FAERS Safety Report 9100647 (Version 2)
Quarter: 2013Q1

REPORT INFORMATION
  Report Type: Spontaneous
  Country: LB (occurrence: LB)
  Receive Date: 20130215
  Receipt Date: 20130311
  Transmission Date: 20140127
  Serious: Yes (Hospitalization, Other)
  Sender: FDA-Public Use
  Company Number: LB-ABBOTT-13P-093-1046240-00

PATIENT
  Age: 18 None
  Sex: Female
  Weight: 48 kg

DRUGS (4)
  1. HUMIRA [Suspect]
     Indication: CROHN^S DISEASE
     Dosage: 160/80 MG LOADING DOSE
     Route: 058
     Dates: start: 20110516
  2. HUMIRA [Suspect]
     Route: 058
     Dates: end: 201205
  3. HUMIRA [Suspect]
     Dosage: 160/80 MG LOADING DOSE
     Dates: start: 20121226
  4. HUMIRA [Suspect]

REACTIONS (3)
  - Pyrexia [Unknown]
  - Abdominal pain [Unknown]
  - Infection [Unknown]
